FAERS Safety Report 7282683-4 (Version None)
Quarter: 2011Q1

REPORT INFORMATION
  Report Type: 
  Country: None (occurrence: None)
  Receive Date: 20110209
  Receipt Date: 20110128
  Transmission Date: 20110831
  Serious: Yes (Hospitalization, Other)
  Sender: FDA-Public Use
  Company Number: US-ELI_LILLY_AND_COMPANY-US200909002929

PATIENT
  Sex: Female
  Weight: 51.7 kg

DRUGS (4)
  1. FORTEO [Suspect]
  2. METHOTREXATE [Concomitant]
     Dosage: UNK, UNKNOWN
     Route: 065
  3. INSUMIN [Concomitant]
     Dosage: UNK, UNKNOWN
     Route: 065
  4. FORTEO [Suspect]
     Indication: OSTEOPOROSIS
     Dosage: 20 UG, DAILY (1/D)
     Dates: start: 20090819

REACTIONS (8)
  - NEOPLASM MALIGNANT [None]
  - DECREASED APPETITE [None]
  - INJECTION SITE HAEMATOMA [None]
  - FATIGUE [None]
  - ANAEMIA [None]
  - CONTUSION [None]
  - MALAISE [None]
  - GENERAL PHYSICAL HEALTH DETERIORATION [None]
